FAERS Safety Report 8827624 (Version 1)
Quarter: 2012Q4

REPORT INFORMATION
  Report Type: 
  Country: JP (occurrence: JP)
  Receive Date: 20121005
  Receipt Date: 20121005
  Transmission Date: 20130627
  Serious: Yes (Hospitalization)
  Sender: FDA-Public Use
  Company Number: JP-TEVA-359050ISR

PATIENT
  Sex: Male

DRUGS (2)
  1. LANSOPRAZOLE [Suspect]
     Dosage: 15 Milligram Daily;
     Route: 048
     Dates: start: 20120703
  2. LENIMEC [Suspect]
     Indication: HYPERTENSION
     Dosage: 5 Milligram Daily;
     Route: 048
     Dates: start: 20120703, end: 20120913

REACTIONS (2)
  - Hyponatraemia [Unknown]
  - Urinary tract infection [Unknown]
